FAERS Safety Report 8059247-8 (Version None)
Quarter: 2012Q1

REPORT INFORMATION
  Report Type: 
  Country: None (occurrence: None)
  Receive Date: 20120119
  Receipt Date: 20120119
  Transmission Date: 20120608
  Serious: Yes (Other)
  Sender: FDA-Public Use
  Company Number: None

PATIENT
  Age: 18 Year
  Sex: Female
  Weight: 54 kg

DRUGS (1)
  1. REMBRANDT 2 HOUR WHITE KIT [Suspect]
     Indication: DENTAL COSMETIC PROCEDURE
     Dosage: 3 DOSES, ONCE, DENTAL
     Route: 004
     Dates: start: 20120104, end: 20120104

REACTIONS (7)
  - DIZZINESS [None]
  - GINGIVAL PAIN [None]
  - RASH [None]
  - SWELLING FACE [None]
  - PRURITUS [None]
  - LOSS OF CONSCIOUSNESS [None]
  - LACRIMATION INCREASED [None]
